FAERS Safety Report 20161237 (Version 1)
Quarter: 2021Q4

REPORT INFORMATION
  Report Type: Spontaneous
  Country: US (occurrence: US)
  Receive Date: 20211208
  Receipt Date: 20211208
  Transmission Date: 20220303
  Serious: No
  Sender: FDA-Public Use
  Company Number: US-NIPPON SHINYAKU-NIP-2021-000057

PATIENT

DRUGS (1)
  1. VILTEPSO [Suspect]
     Active Substance: VILTOLARSEN
     Indication: Product used for unknown indication
     Dosage: 3250 MG, QWK
     Route: 042

REACTIONS (3)
  - Pain [Unknown]
  - Anxiety [Unknown]
  - Injection site mass [Unknown]
